FAERS Safety Report 9238986 (Version 2)
Quarter: 2013Q3

REPORT INFORMATION
  Report Type: Report from Study
  Country: JP (occurrence: JP)
  Receive Date: 20130418
  Receipt Date: 20130905
  Transmission Date: 20140515
  Serious: Yes (Hospitalization, Other)
  Sender: FDA-Public Use
  Company Number: JP-VERTEX PHARMACEUTICAL INC.-2012-019995

PATIENT
  Age: 47 Year
  Sex: Female

DRUGS (14)
  1. VX-950 (TELAPREVIR) [Suspect]
     Indication: CHRONIC HEPATITIS C
     Dosage: 1500 MG, QD
     Route: 048
     Dates: start: 20120614, end: 20120726
  2. REBETOL [Suspect]
     Indication: CHRONIC HEPATITIS C
     Dosage: 400 MG, QD
     Route: 048
     Dates: start: 20120614, end: 20120627
  3. REBETOL [Suspect]
     Dosage: 200 MG, QD
     Route: 048
     Dates: start: 20120628, end: 20120719
  4. PEGINTERFERON ALFA-2B [Suspect]
     Indication: CHRONIC HEPATITIS C
     Dosage: 1.5 ?G/KG, QW
     Route: 058
     Dates: start: 20120614, end: 20120621
  5. PEGINTERFERON ALFA-2B [Suspect]
     Dosage: 0.75 ?G/KG, QW
     Route: 058
     Dates: start: 20120628, end: 20120726
  6. DEPAS [Concomitant]
     Dosage: 0.5 MG, QD
     Route: 048
  7. IRBETAN [Concomitant]
     Dosage: 100 MG, QD
     Route: 048
     Dates: end: 20120919
  8. OMEPRAL [Concomitant]
     Dosage: 20 MG, QD
     Route: 048
     Dates: end: 20120919
  9. METHYCOBAL [Concomitant]
     Dosage: 1500 ?G, QD
     Route: 048
     Dates: end: 20120919
  10. TSUMURA CHOREITO [Concomitant]
     Dosage: 5 G, QD
     Route: 048
  11. CELECOX [Concomitant]
     Dosage: 400 MG, QD
     Route: 048
     Dates: end: 20120919
  12. AZULFIDINE EN [Concomitant]
     Dosage: 1000 MG, QD
     Route: 048
     Dates: end: 20120919
  13. NEUROTROPIN [Concomitant]
     Dosage: 16 UNITS / DAY
     Route: 048
     Dates: end: 20120919
  14. PROMAC [Concomitant]
     Dosage: 150 MG, QD
     Route: 048
     Dates: end: 20120919

REACTIONS (2)
  - Anaemia [Not Recovered/Not Resolved]
  - Hepatocellular carcinoma [Recovered/Resolved]
